FAERS Safety Report 8102848-9 (Version None)
Quarter: 2012Q1

REPORT INFORMATION
  Report Type: 
  Country: None (occurrence: None)
  Receive Date: 20120201
  Receipt Date: 20120120
  Transmission Date: 20120608
  Serious: Yes (Hospitalization)
  Sender: FDA-Public Use
  Company Number: CA-JNJFOC-20120111227

PATIENT
  Sex: Male

DRUGS (2)
  1. REMICADE [Suspect]
     Indication: CROHN'S DISEASE
     Route: 042
     Dates: start: 20101201
  2. REMICADE [Suspect]
     Dosage: FREQUENCY OF INFUSIONS WAS   INCREASED FROM 8 WEEKS TO 4 WEEKS
     Route: 042

REACTIONS (4)
  - WEIGHT INCREASED [None]
  - MALAISE [None]
  - CROHN'S DISEASE [None]
  - THERAPEUTIC RESPONSE DECREASED [None]
